FAERS Safety Report 16066004 (Version 1)
Quarter: 2019Q1

REPORT INFORMATION
  Report Type: Report from Study
  Country: None (occurrence: FR)
  Receive Date: 20190313
  Receipt Date: 20190313
  Transmission Date: 20190418
  Serious: Yes (Other)
  Sender: FDA-Public Use
  Company Number: FR-ABBVIE-19S-056-2699554-00

PATIENT
  Age: 76 Year
  Sex: Male

DRUGS (1)
  1. DUODOPA [Suspect]
     Active Substance: CARBIDOPA\LEVODOPA
     Indication: PARKINSON^S DISEASE
     Dosage: NO MD, ED : 3ML, CDDAY : 6 ML/H.
     Route: 050
     Dates: start: 20190212

REACTIONS (3)
  - Acute motor-sensory axonal neuropathy [Unknown]
  - Emotional distress [Unknown]
  - Dyskinesia [Unknown]

NARRATIVE: CASE EVENT DATE: 2019
